FAERS Safety Report 24257240 (Version 3)
Quarter: 2024Q3

REPORT INFORMATION
  Report Type: Report from Study
  Country: CA (occurrence: CA)
  Receive Date: 20240828
  Receipt Date: 20240913
  Transmission Date: 20241016
  Serious: Yes (Hospitalization)
  Sender: SANDOZ
  Company Number: CA-SANDOZ-SDZ2024CA075396

PATIENT
  Sex: Female

DRUGS (1)
  1. ERELZI [Suspect]
     Active Substance: ETANERCEPT-SZZS
     Indication: Rheumatoid arthritis
     Dosage: 50 MG, QW
     Route: 058
     Dates: start: 20180215

REACTIONS (7)
  - Hospitalisation [Unknown]
  - Aggression [Unknown]
  - Arthralgia [Recovered/Resolved]
  - Bite [Recovered/Resolved]
  - Walking aid user [Recovered/Resolved]
  - Influenza [Unknown]
  - Product use issue [Unknown]
